FAERS Safety Report 24976579 (Version 1)
Quarter: 2025Q1

REPORT INFORMATION
  Report Type: Spontaneous
  Country: US (occurrence: None)
  Receive Date: 20250217
  Receipt Date: 20250217
  Transmission Date: 20250409
  Serious: Yes (Death, Life-Threatening, Hospitalization, Other)
  Sender: HQ SPECIALTY
  Company Number: US-HQ-20250007

PATIENT
  Age: 56 Year
  Sex: Female

DRUGS (3)
  1. LINEZOLID [Suspect]
     Active Substance: LINEZOLID
     Indication: Abdominal infection
     Route: 048
  2. LINEZOLID [Suspect]
     Active Substance: LINEZOLID
     Indication: Abdominal infection
     Route: 042
  3. MEROPENEM [Concomitant]
     Active Substance: MEROPENEM
     Indication: Abdominal infection
     Route: 042

REACTIONS (4)
  - Lactic acidosis [Fatal]
  - Hypoglycaemia [Fatal]
  - Pancreatitis acute [Fatal]
  - Medication error in transfer of care [Unknown]
